FAERS Safety Report 6210675-2 (Version None)
Quarter: 2009Q2

REPORT INFORMATION
  Report Type: 
  Country: None (occurrence: None)
  Receive Date: 20090528
  Receipt Date: 20090528
  Transmission Date: 20091009
  Serious: Yes (Other)
  Sender: FDA-Public Use
  Company Number: None

PATIENT
  Age: 65 Year
  Sex: Male
  Weight: 117.9352 kg

DRUGS (1)
  1. LISINOPRIL [Suspect]
     Indication: DIABETES PROPHYLAXIS
     Dosage: 40MG NIGHTLY PO
     Route: 048
     Dates: start: 20040610, end: 20090518

REACTIONS (2)
  - DRUG HYPERSENSITIVITY [None]
  - PRODUCT QUALITY ISSUE [None]
